FAERS Safety Report 4364130-5 (Version None)
Quarter: 2004Q2

REPORT INFORMATION
  Report Type: 
  Country: None (occurrence: None)
  Receive Date: 20040519
  Receipt Date: 20040506
  Transmission Date: 20050107
  Serious: Yes (Life-Threatening)
  Sender: FDA-Public Use
  Company Number: 2004-BP-03028BP

PATIENT
  Age: 61 Year
  Sex: Female
  Weight: 81.6 kg

DRUGS (2)
  1. COMBIVENT [Suspect]
     Dosage: (SEE TEXT), IH; (SEE TEXT), IH
     Route: 025
     Dates: end: 20040413
  2. COMBIVENT [Suspect]
     Dosage: (SEE TEXT), IH; (SEE TEXT), IH
     Route: 025
     Dates: start: 20040413

REACTIONS (3)
  - ANAPHYLACTIC REACTION [None]
  - DYSPNOEA [None]
  - THROAT TIGHTNESS [None]
